FAERS Safety Report 23334620 (Version 1)
Quarter: 2023Q4

REPORT INFORMATION
  Report Type: Spontaneous
  Country: US (occurrence: US)
  Receive Date: 20231224
  Receipt Date: 20231224
  Transmission Date: 20240110
  Serious: Yes (Hospitalization, Other)
  Sender: FDA-Public Use
  Company Number: US-ELI_LILLY_AND_COMPANY-US202312010423

PATIENT
  Age: 71 Year
  Sex: Male

DRUGS (6)
  1. CYMBALTA [Suspect]
     Active Substance: DULOXETINE HYDROCHLORIDE
     Indication: Product used for unknown indication
     Dosage: UNK, UNKNOWN
     Route: 048
     Dates: end: 20231009
  2. LOXAPINE [Suspect]
     Active Substance: LOXAPINE
     Indication: Product used for unknown indication
     Dosage: UNK, UNKNOWN
     Route: 048
     Dates: end: 20231009
  3. GABAPENTIN [Suspect]
     Active Substance: GABAPENTIN
     Indication: Diabetic neuropathy
     Dosage: UNK, UNKNOWN
     Route: 048
     Dates: end: 20231009
  4. NOVOLOG [Suspect]
     Active Substance: INSULIN ASPART
     Indication: Diabetes mellitus
     Dosage: 100 IU/ML, UNKNOWN
     Route: 058
  5. OZEMPIC [Suspect]
     Active Substance: SEMAGLUTIDE
     Indication: Diabetes mellitus
     Dosage: 0.25/0.50 MG, UNKNOWN
     Route: 058
  6. TRESIBA [Suspect]
     Active Substance: INSULIN DEGLUDEC
     Indication: Diabetes mellitus
     Dosage: UNK, UNKNOWN
     Route: 058

REACTIONS (2)
  - Hallucination [Unknown]
  - Blood glucose increased [Recovering/Resolving]

NARRATIVE: CASE EVENT DATE: 20231001
